FAERS Safety Report 9834964 (Version 2)
Quarter: 2014Q3

REPORT INFORMATION
  Report Type: Spontaneous
  Country: US (occurrence: US)
  Receive Date: 20140122
  Receipt Date: 20140820
  Transmission Date: 20150326
  Serious: Yes (Other)
  Sender: FDA-Public Use
  Company Number: US-009507513-1401USA007475

PATIENT
  Sex: Female

DRUGS (1)
  1. NUVARING [Suspect]
     Active Substance: ETHINYL ESTRADIOL\ETONOGESTREL
     Indication: PRODUCT USED FOR UNKNOWN INDICATION
     Dosage: UNK
     Route: 067
     Dates: start: 20110613

REACTIONS (8)
  - Spinal fusion surgery [Unknown]
  - Migraine [Unknown]
  - Insomnia [Unknown]
  - Anxiety [Unknown]
  - Deep vein thrombosis [Unknown]
  - Spinal osteoarthritis [Unknown]
  - Arthropathy [Unknown]
  - Spinal decompression [Unknown]

NARRATIVE: CASE EVENT DATE: 20110928
